FAERS Safety Report 16363991 (Version 1)
Quarter: 2019Q2

REPORT INFORMATION
  Report Type: Spontaneous
  Country: IL (occurrence: IL)
  Receive Date: 20190528
  Receipt Date: 20190528
  Transmission Date: 20190711
  Serious: Yes (Hospitalization)
  Sender: FDA-Public Use
  Company Number: IL-PFIZER INC-2019221973

PATIENT
  Age: 60 Year
  Sex: Female

DRUGS (4)
  1. RECLAST [Suspect]
     Active Substance: ZOLEDRONIC ACID
     Dosage: UNK
     Route: 048
     Dates: start: 201302, end: 201305
  2. AROMASIN [Suspect]
     Active Substance: EXEMESTANE
     Indication: ANTIDEPRESSANT THERAPY
     Dosage: UNK
     Dates: start: 201302
  3. AFINITOR [Suspect]
     Active Substance: EVEROLIMUS
     Dosage: UNK
     Dates: start: 201302
  4. AFINITOR [Suspect]
     Active Substance: EVEROLIMUS
     Dosage: 5 MG, UNK
     Dates: start: 201305

REACTIONS (4)
  - Mouth ulceration [Unknown]
  - Neoplasm progression [Unknown]
  - Blood creatinine increased [Unknown]
  - Blood urea increased [Unknown]

NARRATIVE: CASE EVENT DATE: 201302
